FAERS Safety Report 23026443 (Version 1)
Quarter: 2023Q4

REPORT INFORMATION
  Report Type: Spontaneous
  Country: NL (occurrence: NL)
  Receive Date: 20231004
  Receipt Date: 20231004
  Transmission Date: 20240110
  Serious: Yes (Death, Hospitalization, Other)
  Sender: FDA-Public Use
  Company Number: NL-SANDOZ-SDZ2023NL009965

PATIENT
  Age: 55 Year
  Sex: Female
  Weight: 125 kg

DRUGS (4)
  1. ACETAMINOPHEN [Suspect]
     Active Substance: ACETAMINOPHEN
     Indication: Product used for unknown indication
     Dosage: 20 TABLETS OF ACETAMINOPHEN 500 MG (10 G, OR 80 MG/KG)
     Route: 065
  2. METFORMIN [Suspect]
     Active Substance: METFORMIN HYDROCHLORIDE
     Indication: Product used for unknown indication
     Dosage: UNK
     Route: 065
  3. SIMVASTATIN [Suspect]
     Active Substance: SIMVASTATIN
     Indication: Product used for unknown indication
     Dosage: 40 MG (1520 MG, OR 12 MG/KG)
     Route: 065
  4. SEMAGLUTIDE [Suspect]
     Active Substance: SEMAGLUTIDE
     Indication: Product used for unknown indication
     Dosage: 30 TABLETS OF SEMAGLUTIDE 14 MG (420 MG OR 3.4 MG/ KG)
     Route: 065

REACTIONS (6)
  - Completed suicide [Fatal]
  - Distributive shock [Fatal]
  - Hepatic necrosis [Fatal]
  - Toxicity to various agents [Fatal]
  - Intentional overdose [Fatal]
  - Lactic acidosis [Fatal]
